FAERS Safety Report 8686663 (Version 8)
Quarter: 2014Q2

REPORT INFORMATION
  Report Type: Report from Study
  Country: US (occurrence: US)
  Receive Date: 20120727
  Receipt Date: 20140529
  Transmission Date: 20141212
  Serious: Yes (Hospitalization)
  Sender: FDA-Public Use
  Company Number: US-BIOGENIDEC-2012BI027027

PATIENT
  Age: 39 Year
  Sex: Female

DRUGS (4)
  1. TYSABRI [Suspect]
     Indication: MULTIPLE SCLEROSIS
     Route: 042
  2. TYSABRI [Suspect]
     Indication: MULTIPLE SCLEROSIS
     Route: 042
     Dates: start: 20080820, end: 20130404
  3. NORCO [Concomitant]
  4. XANAX [Concomitant]

REACTIONS (10)
  - Cognitive disorder [Unknown]
  - Vein disorder [Unknown]
  - Dizziness [Recovered/Resolved]
  - Psychiatric symptom [Recovered/Resolved]
  - Suicide attempt [Recovered/Resolved]
  - Suicidal ideation [Recovered/Resolved]
  - Bipolar I disorder [Not Recovered/Not Resolved]
  - Overdose [Recovered/Resolved]
  - Post-traumatic stress disorder [Recovered/Resolved]
  - Depression [Not Recovered/Not Resolved]
